FAERS Safety Report 8062698 (Version 2)
Quarter: 2014Q3

REPORT INFORMATION
  Report Type: Spontaneous
  Country: US (occurrence: US)
  Receive Date: 20110801
  Receipt Date: 20140901
  Transmission Date: 20150326
  Serious: Yes (Other)
  Sender: FDA-Public Use
  Company Number: US-ROCHE-757310

PATIENT
  Age: 14 Year
  Sex: Female
  Weight: 74.8 kg

DRUGS (2)
  1. ACCUTANE [Suspect]
     Active Substance: ISOTRETINOIN
     Indication: ACNE
     Route: 048
     Dates: start: 2000, end: 2002
  2. ACCUTANE [Suspect]
     Active Substance: ISOTRETINOIN
     Route: 048

REACTIONS (12)
  - Abdominal pain [Unknown]
  - Inflammatory bowel disease [Unknown]
  - Dry eye [Unknown]
  - Lip dry [Unknown]
  - Colitis microscopic [Unknown]
  - Epistaxis [Unknown]
  - Purpura [Unknown]
  - Colitis ulcerative [Unknown]
  - Rectal haemorrhage [Unknown]
  - Depression [Unknown]
  - Irritable bowel syndrome [Unknown]
  - Anal fissure [Unknown]

NARRATIVE: CASE EVENT DATE: 20010111
